FAERS Safety Report 7515044-0 (Version None)
Quarter: 2011Q2

REPORT INFORMATION
  Report Type: 
  Country: None (occurrence: None)
  Receive Date: 20110601
  Receipt Date: 20110517
  Transmission Date: 20111010
  Serious: Yes (Other)
  Sender: FDA-Public Use
  Company Number: FR-JNJFOC-20110302786

PATIENT
  Age: 11 Year
  Sex: Female

DRUGS (5)
  1. REMICADE [Suspect]
     Route: 042
     Dates: start: 20100501
  2. AZATHIOPRINE [Concomitant]
     Indication: CROHN'S DISEASE
     Dates: start: 20070101
  3. AZATHIOPRINE [Concomitant]
     Dates: end: 20090330
  4. REMICADE [Suspect]
     Route: 042
     Dates: start: 20070701
  5. REMICADE [Suspect]
     Indication: CROHN'S DISEASE
     Route: 042
     Dates: start: 20080901

REACTIONS (1)
  - PSORIASIS [None]
